APPROVED DRUG PRODUCT: RAUWOLFIA SERPENTINA
Active Ingredient: RAUWOLFIA SERPENTINA ROOT
Strength: 100MG
Dosage Form/Route: TABLET;ORAL
Application: A080842 | Product #002
Applicant: PUREPAC PHARMACEUTICAL CO
Approved: Approved Prior to Jan 1, 1982 | RLD: No | RS: No | Type: DISCN